FAERS Safety Report 15561923 (Version 1)
Quarter: 2018Q4

REPORT INFORMATION
  Report Type: Spontaneous
  Country: US (occurrence: US)
  Receive Date: 20181029
  Receipt Date: 20181029
  Transmission Date: 20190205
  Serious: Yes (Other)
  Sender: FDA-Public Use
  Company Number: None

PATIENT
  Age: 83 Year
  Sex: Female

DRUGS (10)
  1. PYRIDOXINE INJECTION [Concomitant]
  2. ATORVASTATIN [Concomitant]
     Active Substance: ATORVASTATIN
  3. ALBUTEROL NEBULIZER SOLUTION 0.083% [Concomitant]
  4. CARVEDILOL. [Concomitant]
     Active Substance: CARVEDILOL
  5. SILDENAFIL. [Suspect]
     Active Substance: SILDENAFIL
     Indication: PULMONARY HYPERTENSION
     Route: 048
     Dates: start: 20180907, end: 20180911
  6. BUMETADINE [Concomitant]
     Active Substance: BUMETANIDE
  7. CYANCOBALAM INJECTION [Concomitant]
  8. TELMISARTAN. [Concomitant]
     Active Substance: TELMISARTAN
  9. TRAMADOL. [Concomitant]
     Active Substance: TRAMADOL
  10. ISOSORBIDE MONONITRATE. [Concomitant]
     Active Substance: ISOSORBIDE MONONITRATE

REACTIONS (3)
  - Abdominal discomfort [None]
  - Rash [None]
  - Dyspnoea [None]

NARRATIVE: CASE EVENT DATE: 20180911
